FAERS Safety Report 7578769-7 (Version None)
Quarter: 2011Q2

REPORT INFORMATION
  Report Type: 
  Country: None (occurrence: None)
  Receive Date: 20110628
  Receipt Date: 20110624
  Transmission Date: 20111010
  Serious: Yes (Hospitalization)
  Sender: FDA-Public Use
  Company Number: US-PFIZER INC-2011141293

PATIENT
  Sex: Male
  Weight: 14.966 kg

DRUGS (1)
  1. AZITHROMYCIN [Suspect]
     Indication: PHARYNGITIS STREPTOCOCCAL
     Dosage: 200 MG/4.5ML ONCE A DAY
     Route: 048
     Dates: start: 20110621, end: 20110624

REACTIONS (2)
  - HYPERSENSITIVITY [None]
  - RASH [None]
